FAERS Safety Report 14514005 (Version 1)
Quarter: 2018Q1

REPORT INFORMATION
  Report Type: Spontaneous
  Country: US (occurrence: US)
  Receive Date: 20180209
  Receipt Date: 20180209
  Transmission Date: 20180509
  Serious: No
  Sender: FDA-Public Use
  Company Number: US-SA-2017SA247495

PATIENT
  Age: 81 Year
  Sex: Female

DRUGS (1)
  1. LEVOCETIRIZINE [Suspect]
     Active Substance: LEVOCETIRIZINE
     Indication: MULTIPLE ALLERGIES
     Route: 048
     Dates: start: 20171203

REACTIONS (5)
  - Nasal dryness [Not Recovered/Not Resolved]
  - Condition aggravated [Not Recovered/Not Resolved]
  - Drug ineffective [Unknown]
  - Dyspnoea [Not Recovered/Not Resolved]
  - Insomnia [Not Recovered/Not Resolved]
